FAERS Safety Report 25214759 (Version 1)
Quarter: 2025Q2

REPORT INFORMATION
  Report Type: Spontaneous
  Country: US (occurrence: None)
  Receive Date: 20250418
  Receipt Date: 20250418
  Transmission Date: 20250717
  Serious: Yes (Other)
  Sender: FDA-CTU
  Company Number: None

PATIENT
  Age: 59 Year
  Sex: Female
  Weight: 119 kg

DRUGS (1)
  1. DUPIXENT [Suspect]
     Active Substance: DUPILUMAB
     Route: 058
     Dates: start: 20250326, end: 20250404

REACTIONS (4)
  - Dizziness [None]
  - Syncope [None]
  - Fall [None]
  - Head injury [None]

NARRATIVE: CASE EVENT DATE: 20250404
